FAERS Safety Report 22045165 (Version 2)
Quarter: 2023Q2

REPORT INFORMATION
  Report Type: Spontaneous
  Country: US (occurrence: US)
  Receive Date: 20230228
  Receipt Date: 20230414
  Transmission Date: 20230722
  Serious: No
  Sender: FDA-Public Use
  Company Number: US-PFIZER INC-202300082728

PATIENT
  Age: 52 Year
  Sex: Male

DRUGS (1)
  1. INLYTA [Suspect]
     Active Substance: AXITINIB
     Dosage: 5 MG, 2X/DAY (TAKE 1 TABLET EVERY 12 HOURS BY MOUTH)
     Route: 048
     Dates: start: 20230208

REACTIONS (8)
  - Dysphonia [Unknown]
  - Pruritus [Unknown]
  - Glossodynia [Unknown]
  - Blood pressure increased [Unknown]
  - Pain in extremity [Unknown]
  - Skin exfoliation [Unknown]
  - Oral pain [Unknown]
  - Migraine [Unknown]

NARRATIVE: CASE EVENT DATE: 20230101
